FAERS Safety Report 24546367 (Version 1)
Quarter: 2024Q4

REPORT INFORMATION
  Report Type: Other
  Country: US (occurrence: US)
  Receive Date: 20241024
  Receipt Date: 20241024
  Transmission Date: 20250114
  Serious: Yes (Death, Hospitalization)
  Sender: ORBION PHARMACEUTICALS PRIVATE LIMITED
  Company Number: US-OrBion Pharmaceuticals Private Limited-2163279

PATIENT
  Age: 63 Year
  Sex: Male

DRUGS (4)
  1. AMLODIPINE BESYLATE [Suspect]
     Active Substance: AMLODIPINE BESYLATE
     Indication: Hypertension
  2. LOSARTAN [Suspect]
     Active Substance: LOSARTAN
  3. METFORMIN [Suspect]
     Active Substance: METFORMIN HYDROCHLORIDE
  4. METOPROLOL TARTRATE [Suspect]
     Active Substance: METOPROLOL TARTRATE

REACTIONS (9)
  - Leukocytosis [Fatal]
  - BRASH syndrome [Fatal]
  - Toxicity to various agents [Fatal]
  - Metabolic acidosis [Fatal]
  - Respiratory failure [Fatal]
  - Pulmonary oedema [Fatal]
  - Blood creatinine increased [Fatal]
  - Hyperglycaemia [Fatal]
  - Lactic acidosis [Fatal]
